FAERS Safety Report 5318679-9 (Version None)
Quarter: 2007Q2

REPORT INFORMATION
  Report Type: 
  Country: None (occurrence: None)
  Receive Date: 20070508
  Receipt Date: 20070502
  Transmission Date: 20071010
  Serious: Yes (Life-Threatening, Hospitalization)
  Sender: FDA-Public Use
  Company Number: FR-SANOFI-SYNTHELABO-F01200700572

PATIENT
  Sex: Male
  Weight: 94 kg

DRUGS (5)
  1. PREVISCAN [Suspect]
     Route: 048
     Dates: end: 20060507
  2. FLUOROURACIL [Suspect]
     Dosage: 800 MG BOLUS FOLLOWED BY 4800 MG INFUSION
     Route: 042
     Dates: start: 20060505, end: 20060507
  3. FOLINIC ACID [Suspect]
     Route: 042
     Dates: start: 20060505, end: 20060505
  4. IRINOTECAN HCL [Suspect]
     Route: 042
     Dates: start: 20060505, end: 20060505
  5. OXALIPLATIN [Suspect]
     Indication: PANCREATIC CARCINOMA METASTATIC
     Route: 042
     Dates: start: 20060505, end: 20060505

REACTIONS (2)
  - RECTAL HAEMORRHAGE [None]
  - SEPTIC SHOCK [None]
